FAERS Safety Report 6713630-9 (Version None)
Quarter: 2010Q2

REPORT INFORMATION
  Report Type: 
  Country: None (occurrence: None)
  Receive Date: 20100506
  Receipt Date: 20100428
  Transmission Date: 20101027
  Serious: Yes (Other)
  Sender: FDA-Public Use
  Company Number: A0858239A

PATIENT
  Age: 53 Year
  Sex: Male

DRUGS (1)
  1. PROMACTA [Suspect]
     Indication: DRUG USE FOR UNKNOWN INDICATION
     Dates: start: 20090601, end: 20090101

REACTIONS (7)
  - BIOPSY BONE MARROW [None]
  - GRANULOCYTE COUNT INCREASED [None]
  - LEUKOCYTOSIS [None]
  - MARROW HYPERPLASIA [None]
  - MEGAKARYOCYTES INCREASED [None]
  - PLATELET COUNT DECREASED [None]
  - WHITE BLOOD CELL COUNT INCREASED [None]
